FAERS Safety Report 24132964 (Version 1)
Quarter: 2024Q3

REPORT INFORMATION
  Report Type: Spontaneous
  Country: PL (occurrence: PL)
  Receive Date: 20240724
  Receipt Date: 20240724
  Transmission Date: 20241016
  Serious: Yes (Other)
  Sender: SK LIFE SCIENCE
  Company Number: PL-SK LIFE SCIENCE, INC-SKPVG-2024-001447

PATIENT

DRUGS (7)
  1. XCOPRI [Suspect]
     Active Substance: CENOBAMATE
     Indication: Lennox-Gastaut syndrome
     Dosage: 50 MILLIGRAM, QD
     Route: 048
     Dates: start: 202308, end: 202311
  2. OXCARBAZEPINE [Concomitant]
     Active Substance: OXCARBAZEPINE
     Indication: Product used for unknown indication
     Dosage: 1350 MILLIGRAM, QD
     Route: 065
  3. VALPROIC ACID [Concomitant]
     Active Substance: VALPROIC ACID
     Indication: Product used for unknown indication
     Dosage: 1450 MILLIGRAM, QD
     Route: 065
  4. MIZODIN [Concomitant]
     Indication: Product used for unknown indication
     Dosage: 1/4 TABLET/DAY
     Route: 065
  5. LEVETIRACETAM [Concomitant]
     Active Substance: LEVETIRACETAM
     Indication: Product used for unknown indication
     Dosage: 1500 MG (2 D)
     Route: 065
  6. CARBAMAZEPINE [Concomitant]
     Active Substance: CARBAMAZEPINE
     Indication: Product used for unknown indication
     Dosage: 600 MG (2 D)
     Route: 065
  7. ORIZON [ESZOPICLONE] [Concomitant]
     Indication: Product used for unknown indication
     Dosage: 1-2 MG
     Route: 065

REACTIONS (5)
  - Pneumonia [Recovered/Resolved]
  - Off label use [Recovered/Resolved]
  - Respiratory tract infection [Recovered/Resolved]
  - Nausea [Recovered/Resolved]
  - Rash [Recovered/Resolved]

NARRATIVE: CASE EVENT DATE: 20230801
